FAERS Safety Report 18295329 (Version 1)
Quarter: 2020Q3

REPORT INFORMATION
  Report Type: Report from Study
  Country: BR (occurrence: BR)
  Receive Date: 20200922
  Receipt Date: 20200922
  Transmission Date: 20201103
  Serious: Yes (Other)
  Sender: FDA-Public Use
  Company Number: NVSC2020BR256175

PATIENT
  Sex: Male

DRUGS (4)
  1. ENTRESTO [Suspect]
     Active Substance: SACUBITRIL\VALSARTAN
     Dosage: 1 DF (49/51MG) APPROXIMATELY 2 MONTHS AGO
     Route: 065
  2. ENTRESTO [Suspect]
     Active Substance: SACUBITRIL\VALSARTAN
     Indication: CARDIAC FAILURE
     Dosage: START DATE APPROXIMATELY 1 YEAR AGO
     Route: 065
  3. LOSARTAN. [Suspect]
     Active Substance: LOSARTAN
     Indication: HYPERTENSION
     Dosage: UNK
     Route: 065
  4. XARELTO [Concomitant]
     Active Substance: RIVAROXABAN
     Indication: CARDIAC FAILURE
     Dosage: UNK UNK, UNKNOWN (START AFTER. STOP: AFTER 6)
     Route: 065

REACTIONS (4)
  - Weight bearing difficulty [Not Recovered/Not Resolved]
  - Hypertension [Unknown]
  - Cardiac murmur [Recovering/Resolving]
  - Cardiac failure [Recovering/Resolving]
